FAERS Safety Report 7548954-9 (Version None)
Quarter: 2011Q2

REPORT INFORMATION
  Report Type: 
  Country: None (occurrence: None)
  Receive Date: 20110615
  Receipt Date: 20110607
  Transmission Date: 20111010
  Serious: Yes (Hospitalization, Other)
  Sender: FDA-Public Use
  Company Number: FR-PFIZER INC-2011123070

PATIENT
  Age: 67 Year
  Sex: Male

DRUGS (12)
  1. XANAX [Suspect]
     Indication: DEPRESSION
     Dosage: 0.25 MG, 3X/DAY
     Route: 048
     Dates: end: 20110417
  2. MEDIATENSYL [Suspect]
     Indication: HYPERTENSION
     Dosage: 60 MG, 3X/DAY
     Route: 048
     Dates: end: 20110417
  3. ATENOLOL [Suspect]
     Dosage: UNK
     Dates: start: 20110424
  4. VERAPAMIL HCL [Suspect]
     Indication: HYPERTENSION
     Dosage: 240 MG, 1X/DAY
     Route: 048
     Dates: end: 20110417
  5. CIPROFIBRATE [Suspect]
     Indication: DYSLIPIDAEMIA
     Dosage: 100 MG, 1X/DAY
     Route: 048
     Dates: end: 20110417
  6. ESCITALOPRAM [Suspect]
     Indication: DEPRESSION
     Dosage: 10 MG, 1X/DAY
     Route: 048
     Dates: end: 20110417
  7. ESCITALOPRAM [Suspect]
     Dosage: UNK
     Dates: start: 20110424
  8. ATENOLOL [Suspect]
     Indication: HYPERTENSION
     Dosage: 100 MG, 1X/DAY
     Route: 048
     Dates: end: 20110417
  9. CANDESARTAN CILEXETIL AND HYDROCHLOROTHIAZIDE [Suspect]
     Indication: HYPERTENSION
     Dosage: 16/12.5MG PER DAY
     Route: 048
     Dates: end: 20110417
  10. GLUCOR [Suspect]
     Indication: TYPE 2 DIABETES MELLITUS
     Dosage: 50 MG, 3X/DAY
     Route: 048
     Dates: end: 20110417
  11. MIRTAZAPINE [Suspect]
     Indication: DEPRESSION
     Dosage: 15 MG, 1X/DAY
     Route: 048
     Dates: end: 20110417
  12. METFORMIN HCL [Suspect]
     Indication: TYPE 2 DIABETES MELLITUS
     Dosage: 850 MG, 3X/DAY
     Route: 048
     Dates: end: 20110417

REACTIONS (18)
  - BRADYCARDIA [None]
  - DYSPNOEA [None]
  - HYPOTENSION [None]
  - DRUG LEVEL INCREASED [None]
  - BLOOD PH DECREASED [None]
  - DIARRHOEA [None]
  - VOMITING [None]
  - STAPHYLOCOCCAL BACTERAEMIA [None]
  - ABDOMINAL PAIN [None]
  - PALLOR [None]
  - SEPTIC SHOCK [None]
  - PYREXIA [None]
  - LACTIC ACIDOSIS [None]
  - GENERAL PHYSICAL HEALTH DETERIORATION [None]
  - BLOOD BICARBONATE DECREASED [None]
  - RENAL FAILURE ACUTE [None]
  - HYPERKALAEMIA [None]
  - DISORIENTATION [None]
